FAERS Safety Report 8030059-4 (Version None)
Quarter: 2012Q1

REPORT INFORMATION
  Report Type: 
  Country: None (occurrence: None)
  Receive Date: 20120106
  Receipt Date: 20120106
  Transmission Date: 20120608
  Serious: Yes (Death)
  Sender: FDA-Public Use
  Company Number: None

PATIENT
  Age: 5 Year
  Sex: Male

DRUGS (5)
  1. TOPAMAX [Suspect]
  2. KEPPRA [Suspect]
  3. ABILIFY [Suspect]
     Dosage: 1 CC IN MORNING AND 2 CC AT NIGHT
  4. DIASTAT [Suspect]
  5. CARBATROL [Suspect]
     Dosage: 300 MG DAILY IN MORNING AND 400 MG DAILY AT NIGHT

REACTIONS (2)
  - EPISTAXIS [None]
  - PULMONARY HAEMORRHAGE [None]
